FAERS Safety Report 24799392 (Version 1)
Quarter: 2025Q1

REPORT INFORMATION
  Report Type: Spontaneous
  Country: IN (occurrence: IN)
  Receive Date: 20250102
  Receipt Date: 20250102
  Transmission Date: 20250409
  Serious: Yes (Other)
  Sender: ACCORD
  Company Number: IN-MLMSERVICE-20241219-PI312321-00082-1

PATIENT
  Age: 67 Year
  Sex: Male

DRUGS (12)
  1. CARBOPLATIN [Suspect]
     Active Substance: CARBOPLATIN
     Indication: Renal cell carcinoma
     Dosage: AUC 5 IN 500 ML NORMAL SALINE OVER 30 MINUTES, 5 CYCLES
     Dates: start: 2023
  2. GEMCITABINE [Suspect]
     Active Substance: GEMCITABINE
     Indication: Renal cell carcinoma
     Dosage: IN 250ML NORMAL SALINE OVER 30MINUTES, 5 CYCLES
     Dates: start: 2023
  3. SODIUM CHLORIDE [Concomitant]
     Active Substance: SODIUM CHLORIDE
     Dosage: CARBOPLATIN AUC5 INTRAVENOUS INFUSION IN 500ML NORMAL SALINE OVER 30MINUTES
     Dates: start: 2023
  4. CARBOPLATIN [Suspect]
     Active Substance: CARBOPLATIN
     Indication: Metastases to bone
     Dosage: AUC 5 IN 500 ML NORMAL SALINE OVER 30 MINUTES, 5 CYCLES
     Dates: start: 2023
  5. CARBOPLATIN [Suspect]
     Active Substance: CARBOPLATIN
     Indication: Metastases to pleura
     Dosage: AUC 5 IN 500 ML NORMAL SALINE OVER 30 MINUTES, 5 CYCLES
     Dates: start: 2023
  6. CARBOPLATIN [Suspect]
     Active Substance: CARBOPLATIN
     Indication: Metastases to lymph nodes
     Dosage: AUC 5 IN 500 ML NORMAL SALINE OVER 30 MINUTES, 5 CYCLES
     Dates: start: 2023
  7. GEMCITABINE [Suspect]
     Active Substance: GEMCITABINE
     Indication: Metastases to bone
     Dosage: IN 250ML NORMAL SALINE OVER 30MINUTES, 5 CYCLES
     Dates: start: 2023
  8. GEMCITABINE [Suspect]
     Active Substance: GEMCITABINE
     Indication: Metastases to pleura
     Dosage: IN 250ML NORMAL SALINE OVER 30MINUTES, 5 CYCLES
     Dates: start: 2023
  9. GEMCITABINE [Suspect]
     Active Substance: GEMCITABINE
     Indication: Metastases to lymph nodes
     Dosage: IN 250ML NORMAL SALINE OVER 30MINUTES, 5 CYCLES
     Dates: start: 2023
  10. SODIUM CHLORIDE [Concomitant]
     Active Substance: SODIUM CHLORIDE
     Dosage: GEMCITABINE 1,000 MG/M2 IN 250ML NORMAL SALINE OVER 30MINUTES
     Dates: start: 2023
  11. CARBOPLATIN [Suspect]
     Active Substance: CARBOPLATIN
     Indication: Metastases to lung
     Dosage: AUC 5 IN 500 ML NORMAL SALINE OVER 30 MINUTES, 5 CYCLES
     Dates: start: 2023
  12. GEMCITABINE [Suspect]
     Active Substance: GEMCITABINE
     Indication: Metastases to lung
     Dosage: IN 250ML NORMAL SALINE OVER 30MINUTES, 5 CYCLES
     Dates: start: 2023

REACTIONS (2)
  - Renal impairment [Recovering/Resolving]
  - Oliguria [Recovering/Resolving]
